FAERS Safety Report 24625341 (Version 1)
Quarter: 2024Q4

REPORT INFORMATION
  Report Type: Spontaneous
  Country: AU (occurrence: AU)
  Receive Date: 20241115
  Receipt Date: 20241115
  Transmission Date: 20250115
  Serious: Yes (Other)
  Sender: BRISTOL-MYERS SQUIBB COMPANY
  Company Number: AU-BRISTOL-MYERS SQUIBB COMPANY-2024-175481

PATIENT
  Age: 63 Year

DRUGS (1)
  1. NIVOLUMAB [Suspect]
     Active Substance: NIVOLUMAB
     Indication: Non-small cell lung cancer

REACTIONS (6)
  - Neuropathy peripheral [Unknown]
  - Pulmonary fibrosis [Unknown]
  - Pneumonitis [Unknown]
  - Organising pneumonia [Unknown]
  - Pleurisy [Unknown]
  - Pneumonia [Unknown]
